FAERS Safety Report 4738997-2 (Version None)
Quarter: 2005Q3

REPORT INFORMATION
  Report Type: 
  Country: None (occurrence: None)
  Receive Date: 20050801
  Receipt Date: 20050520
  Transmission Date: 20060218
  Serious: Yes (Other)
  Sender: FDA-Public Use
  Company Number: 212931

PATIENT
  Age: 59 Year
  Sex: Male

DRUGS (2)
  1. RITUXAN [Suspect]
     Indication: B-CELL LYMPHOMA
     Dates: start: 20050301, end: 20050301
  2. PRE-MEDICATIONS (UNK INGREDIENTS) (GENERIC COMPONENT(S) NOT KNOWN [Concomitant]

REACTIONS (2)
  - CHILLS [None]
  - HYPOTENSION [None]
